FAERS Safety Report 9848109 (Version 1)
Quarter: 2014Q1

REPORT INFORMATION
  Report Type: Spontaneous
  Country: US (occurrence: None)
  Receive Date: 20140123
  Receipt Date: 20140123
  Transmission Date: 20141002
  Serious: Yes (Life-Threatening)
  Sender: FDA-Public Use
  Company Number: None

PATIENT
  Age: 63 Year
  Sex: Male
  Weight: 80 kg

DRUGS (2)
  1. HEPARIN [Suspect]
     Indication: ATRIAL FIBRILLATION
     Dates: start: 20130508, end: 20130520
  2. PIPERACILLIN/TAZOBACTAM [Suspect]
     Dates: start: 20130519, end: 20130520

REACTIONS (2)
  - Thrombocytopenia [None]
  - Drug specific antibody present [None]
